FAERS Safety Report 7964366-8 (Version None)
Quarter: 2011Q4

REPORT INFORMATION
  Report Type: 
  Country: None (occurrence: None)
  Receive Date: 20111208
  Receipt Date: 20111205
  Transmission Date: 20120403
  Serious: Yes (Death)
  Sender: FDA-Public Use
  Company Number: VE-PFIZER INC-2011290916

PATIENT
  Age: 65 Year
  Sex: Male

DRUGS (3)
  1. GLUCOFAGE [Concomitant]
     Indication: DIABETES MELLITUS
     Route: 048
  2. LIPITOR [Suspect]
     Indication: HYPERCHOLESTEROLAEMIA
     Dosage: 20 MG, 1X/DAY
     Route: 048
     Dates: start: 20090101
  3. INSULIN INJECTION [Concomitant]
     Indication: DIABETES MELLITUS
     Route: 058

REACTIONS (1)
  - RESPIRATORY ARREST [None]
